FAERS Safety Report 15266144 (Version 3)
Quarter: 2019Q2

REPORT INFORMATION
  Report Type: Report from Study
  Country: FR (occurrence: FR)
  Receive Date: 20180810
  Receipt Date: 20190514
  Transmission Date: 20190711
  Serious: Yes (Death, Other)
  Sender: FDA-Public Use
  Company Number: FR-JAZZ-2018-FR-011981

PATIENT

DRUGS (1)
  1. DEFITELIO [Suspect]
     Active Substance: DEFIBROTIDE SODIUM
     Indication: PRODUCT USED FOR UNKNOWN INDICATION
     Dosage: 26 MG/KG/DAY
     Dates: start: 20180412, end: 20180504

REACTIONS (3)
  - Venoocclusive disease [Fatal]
  - Multiple organ dysfunction syndrome [Unknown]
  - Peritonitis [Fatal]

NARRATIVE: CASE EVENT DATE: 20180504
